FAERS Safety Report 6830192 (Version 2)
Quarter: 2015Q3

REPORT INFORMATION
  Report Type: Spontaneous
  Country: US (occurrence: US)
  Receive Date: 20081202
  Receipt Date: 20150803
  Transmission Date: 20151125
  Serious: Yes (Other)
  Sender: FDA-Public Use
  Company Number: US-GILEAD-2008-0017930

PATIENT
  Age: 51 Year
  Sex: Female
  Weight: 62.6 kg

DRUGS (18)
  1. FLEXERIL [Concomitant]
     Active Substance: CYCLOBENZAPRINE HYDROCHLORIDE
  2. LASIX [Concomitant]
     Active Substance: FUROSEMIDE
  3. PREDNISONE. [Concomitant]
     Active Substance: PREDNISONE
  4. LEUCOVORIN. [Concomitant]
     Active Substance: LEUCOVORIN
  5. NEXIUM [Concomitant]
     Active Substance: ESOMEPRAZOLE MAGNESIUM
  6. LYRICA [Suspect]
     Active Substance: PREGABALIN
     Dates: end: 20080930
  7. METHOTREXATE [Concomitant]
     Active Substance: METHOTREXATE
  8. FELODIPINE. [Concomitant]
     Active Substance: FELODIPINE
  9. LOVASTATIN. [Concomitant]
     Active Substance: LOVASTATIN
  10. TOPAMAX [Concomitant]
     Active Substance: TOPIRAMATE
  11. LISINOPRIL. [Concomitant]
     Active Substance: LISINOPRIL
  12. ASA [Concomitant]
     Active Substance: ASPIRIN
  13. SPIRIVA [Concomitant]
     Active Substance: TIOTROPIUM BROMIDE MONOHYDRATE
  14. PLAQUENIL [Concomitant]
     Active Substance: HYDROXYCHLOROQUINE SULFATE
  15. ALBUTEROL. [Concomitant]
     Active Substance: ALBUTEROL
  16. BOSENTAN [Concomitant]
     Active Substance: BOSENTAN
  17. LETAIRIS [Suspect]
     Active Substance: AMBRISENTAN
     Indication: PULMONARY ARTERIAL HYPERTENSION
     Route: 048
     Dates: start: 20080724, end: 20080825
  18. POTASSIUM [Concomitant]
     Active Substance: POTASSIUM

REACTIONS (3)
  - Dyspnoea [Recovered/Resolved]
  - Oedema peripheral [Recovered/Resolved]
  - Fluid retention [Recovered/Resolved]

NARRATIVE: CASE EVENT DATE: 20080821
